FAERS Safety Report 21010941 (Version 7)
Quarter: 2022Q3

REPORT INFORMATION
  Report Type: Report from Study
  Country: US (occurrence: US)
  Receive Date: 20220627
  Receipt Date: 20220922
  Transmission Date: 20221027
  Serious: Yes (Hospitalization, Other)
  Sender: FDA-Public Use
  Company Number: US-BRISTOL-MYERS SQUIBB COMPANY-2022-029587

PATIENT
  Age: 43 Year
  Sex: Female
  Weight: 49.9 kg

DRUGS (112)
  1. NIVOLUMAB [Suspect]
     Active Substance: NIVOLUMAB
     Indication: Colorectal cancer
     Dosage: 480 MG, Q4WEEKS
     Route: 042
     Dates: end: 20220608
  2. CABOZANTINIB [Suspect]
     Active Substance: CABOZANTINIB
     Indication: Colorectal cancer
     Dosage: 40 MG, QD (2 TABLETS 20 MG DAILY)
     Route: 048
     Dates: end: 20220616
  3. VITAMIN D3 [Concomitant]
     Active Substance: CHOLECALCIFEROL
  4. VITAMIN D3 [Concomitant]
     Active Substance: CHOLECALCIFEROL
     Indication: Product used for unknown indication
  5. VITAMIN D3 [Concomitant]
     Active Substance: CHOLECALCIFEROL
  6. VITAMIN D3 [Concomitant]
     Active Substance: CHOLECALCIFEROL
     Route: 065
  7. IMODIUM [Concomitant]
     Active Substance: LOPERAMIDE HYDROCHLORIDE
  8. IMODIUM [Concomitant]
     Active Substance: LOPERAMIDE HYDROCHLORIDE
     Indication: Diarrhoea
  9. IMODIUM [Concomitant]
     Active Substance: LOPERAMIDE HYDROCHLORIDE
  10. IMODIUM [Concomitant]
     Active Substance: LOPERAMIDE HYDROCHLORIDE
     Route: 065
  11. ATIVAN [Concomitant]
     Active Substance: LORAZEPAM
     Indication: Prophylaxis of nausea and vomiting
  12. ATIVAN [Concomitant]
     Active Substance: LORAZEPAM
  13. ATIVAN [Concomitant]
     Active Substance: LORAZEPAM
  14. ATIVAN [Concomitant]
     Active Substance: LORAZEPAM
     Route: 048
  15. MS CONTIN [Concomitant]
     Active Substance: MORPHINE SULFATE
     Indication: Pain
     Dosage: TAKE 2 TABLETS BY MOUTH 2 TIMES DAILY FOR SEVERE CHRONIC PAIN REQUIRING LONG TERM OPIOID TREATMENT
  16. MS CONTIN [Concomitant]
     Active Substance: MORPHINE SULFATE
     Indication: Product used for unknown indication
     Dosage: TAKE 30 MG BY MOUTH
  17. MS CONTIN [Concomitant]
     Active Substance: MORPHINE SULFATE
     Dosage: TAKE 2 TABLETS BY MOUTH 2 TIMES DAILY FOR SEVERE CHRONIC PAIN REQUIRING LONG TERM OPIOID TREATMENT
  18. MS CONTIN [Concomitant]
     Active Substance: MORPHINE SULFATE
     Dosage: TAKE 30 MG BY MOUTH
  19. MS CONTIN [Concomitant]
     Active Substance: MORPHINE SULFATE
     Dosage: TAKE 30 MG BY MOUTH
  20. MS CONTIN [Concomitant]
     Active Substance: MORPHINE SULFATE
     Dosage: MORPHINE (MS CONT IN) 15 MG 12 HR TABLET TAKE 2 TABLETS BY MOUTH 2 TIMES DAILY FOR SEVERE CHRONIC PA
     Route: 048
  21. MS CONTIN [Concomitant]
     Active Substance: MORPHINE SULFATE
     Dosage: TAKE 30 MG BY MOUTH
     Route: 048
  22. ZYPREXA [Concomitant]
     Active Substance: OLANZAPINE
  23. ZYPREXA [Concomitant]
     Active Substance: OLANZAPINE
     Indication: Product used for unknown indication
  24. ZYPREXA [Concomitant]
     Active Substance: OLANZAPINE
  25. ZYPREXA [Concomitant]
     Active Substance: OLANZAPINE
     Route: 048
  26. ZYPREXA [Concomitant]
     Active Substance: OLANZAPINE
     Route: 065
  27. ROXICODONE [Concomitant]
     Active Substance: OXYCODONE HYDROCHLORIDE
     Indication: Cancer pain
  28. ROXICODONE [Concomitant]
     Active Substance: OXYCODONE HYDROCHLORIDE
  29. ROXICODONE [Concomitant]
     Active Substance: OXYCODONE HYDROCHLORIDE
  30. ROXICODONE [Concomitant]
     Active Substance: OXYCODONE HYDROCHLORIDE
     Route: 048
  31. GLYCOLAX [Concomitant]
     Active Substance: POLYETHYLENE GLYCOL 3350
  32. GLYCOLAX [Concomitant]
     Active Substance: POLYETHYLENE GLYCOL 3350
     Indication: Product used for unknown indication
  33. GLYCOLAX [Concomitant]
     Active Substance: POLYETHYLENE GLYCOL 3350
  34. GLYCOLAX [Concomitant]
     Active Substance: POLYETHYLENE GLYCOL 3350
     Route: 065
  35. K PHOS ORIGINAL [Concomitant]
     Active Substance: POTASSIUM PHOSPHATE, MONOBASIC
     Indication: Hypophosphataemia
  36. K PHOS ORIGINAL [Concomitant]
     Active Substance: POTASSIUM PHOSPHATE, MONOBASIC
  37. K PHOS ORIGINAL [Concomitant]
     Active Substance: POTASSIUM PHOSPHATE, MONOBASIC
  38. K PHOS ORIGINAL [Concomitant]
     Active Substance: POTASSIUM PHOSPHATE, MONOBASIC
     Route: 048
  39. XARELTO [Concomitant]
     Active Substance: RIVAROXABAN
  40. XARELTO [Concomitant]
     Active Substance: RIVAROXABAN
     Indication: Deep vein thrombosis
  41. XARELTO [Concomitant]
     Active Substance: RIVAROXABAN
  42. XARELTO [Concomitant]
     Active Substance: RIVAROXABAN
     Route: 048
  43. TRANSDERM SCOP [Concomitant]
     Active Substance: SCOPOLAMINE
  44. TRANSDERM SCOP [Concomitant]
     Active Substance: SCOPOLAMINE
     Indication: Product used for unknown indication
  45. TRANSDERM SCOP [Concomitant]
     Active Substance: SCOPOLAMINE
  46. TRANSDERM SCOP [Concomitant]
     Active Substance: SCOPOLAMINE
     Dosage: 1 MG OVER 3 DAYS PATCH
     Route: 065
  47. SENOKOT [Concomitant]
     Active Substance: SENNOSIDES
     Indication: Constipation
     Dosage: UNK
  48. SENOKOT [Concomitant]
     Active Substance: SENNOSIDES
     Dosage: UNK
  49. SENOKOT [Concomitant]
     Active Substance: SENNOSIDES
     Dosage: UNK
  50. SENOKOT [Concomitant]
     Active Substance: SENNOSIDES
     Dosage: UNK
     Route: 065
  51. SCOPOLAMINE [Concomitant]
     Active Substance: SCOPOLAMINE
     Indication: Product used for unknown indication
  52. MIRALAX [Concomitant]
     Active Substance: POLYETHYLENE GLYCOL 3350
     Indication: Constipation
  53. MIRALAX [Concomitant]
     Active Substance: POLYETHYLENE GLYCOL 3350
  54. MIRALAX [Concomitant]
     Active Substance: POLYETHYLENE GLYCOL 3350
  55. MIRALAX [Concomitant]
     Active Substance: POLYETHYLENE GLYCOL 3350
  56. MIRALAX [Concomitant]
     Active Substance: POLYETHYLENE GLYCOL 3350
     Route: 065
  57. NARCAN [Concomitant]
     Active Substance: NALOXONE HYDROCHLORIDE
     Indication: Toxicity to various agents
  58. NARCAN [Concomitant]
     Active Substance: NALOXONE HYDROCHLORIDE
     Indication: Product used for unknown indication
  59. NARCAN [Concomitant]
     Active Substance: NALOXONE HYDROCHLORIDE
  60. NARCAN [Concomitant]
     Active Substance: NALOXONE HYDROCHLORIDE
     Dosage: CALL 911. ADMINISTER A SINGLE SPRAY INTO ONE NOSTRIL. ?IF NO RESPONSE AFTER 3 MINUTES REPEAT DOSE IN
     Route: 065
  61. ENULOSE [Concomitant]
     Active Substance: LACTULOSE
     Indication: Constipation
     Dosage: TAKE 15 MLS BY MOUTH 3 TIMES DAILY AS NEEDED
  62. ENULOSE [Concomitant]
     Active Substance: LACTULOSE
     Dosage: TAKE 15 MLS BY MOUTH 3 TIMES DAILY AS NEEDED
  63. ENULOSE [Concomitant]
     Active Substance: LACTULOSE
     Dosage: TAKE 15 MLS BY MOUTH 3 TIMES DAILY AS NEEDED, 10 GRAM/15 ML
     Route: 048
  64. HEPARIN SODIUM [Concomitant]
     Active Substance: HEPARIN SODIUM
  65. HEPARIN SODIUM [Concomitant]
     Active Substance: HEPARIN SODIUM
     Indication: Product used for unknown indication
  66. HEPARIN SODIUM [Concomitant]
     Active Substance: HEPARIN SODIUM
  67. HEPARIN SODIUM [Concomitant]
     Active Substance: HEPARIN SODIUM
     Route: 065
  68. KLOR-CON [Concomitant]
     Active Substance: POTASSIUM CHLORIDE
  69. KLOR-CON [Concomitant]
     Active Substance: POTASSIUM CHLORIDE
     Indication: Product used for unknown indication
  70. KLOR-CON [Concomitant]
     Active Substance: POTASSIUM CHLORIDE
  71. KLOR-CON [Concomitant]
     Active Substance: POTASSIUM CHLORIDE
     Route: 065
  72. SIMETHICONE (DIMETHICONE) [Concomitant]
     Active Substance: DIMETHICONE
     Indication: Flatulence
  73. SIMETHICONE (DIMETHICONE) [Concomitant]
     Active Substance: DIMETHICONE
  74. SIMETHICONE (DIMETHICONE) [Concomitant]
     Active Substance: DIMETHICONE
  75. SIMETHICONE (DIMETHICONE) [Concomitant]
     Active Substance: DIMETHICONE
     Route: 065
  76. DRISDOL [Concomitant]
     Active Substance: ERGOCALCIFEROL
     Indication: Vitamin D deficiency
  77. DRISDOL [Concomitant]
     Active Substance: ERGOCALCIFEROL
  78. DRISDOL [Concomitant]
     Active Substance: ERGOCALCIFEROL
  79. DRISDOL [Concomitant]
     Active Substance: ERGOCALCIFEROL
     Route: 065
  80. TYLENOL [Concomitant]
     Active Substance: ACETAMINOPHEN
     Indication: Pain
  81. TYLENOL [Concomitant]
     Active Substance: ACETAMINOPHEN
     Indication: Headache
  82. TYLENOL [Concomitant]
     Active Substance: ACETAMINOPHEN
     Indication: Myalgia
  83. MORPHINE [Concomitant]
     Active Substance: MORPHINE
     Indication: Cancer pain
  84. GLUTOSE [Concomitant]
     Active Substance: DEXTROSE
     Indication: Hypoglycaemia
  85. GLUTOSE [Concomitant]
     Active Substance: DEXTROSE
  86. GLUCAGON [Concomitant]
     Active Substance: GLUCAGON
     Indication: Hypoglycaemia
  87. GLUCAGON [Concomitant]
     Active Substance: GLUCAGON
  88. METHADONE [Concomitant]
     Active Substance: METHADONE HYDROCHLORIDE
     Indication: Pain
  89. METHADONE [Concomitant]
     Active Substance: METHADONE HYDROCHLORIDE
  90. TPN FOR DISCHARGE [Concomitant]
     Indication: Product used for unknown indication
  91. SCOPOLAMINE [Concomitant]
     Active Substance: SCOPOLAMINE
  92. GENERIC DME [Concomitant]
     Indication: Colorectal cancer
  93. DURAGESIC [Concomitant]
     Active Substance: FENTANYL
     Indication: Pain
  94. MYCOSTATIN [Concomitant]
     Active Substance: NYSTATIN
     Indication: Skin candida
     Route: 065
  95. MYCOSTATIN [Concomitant]
     Active Substance: NYSTATIN
     Indication: Rash
  96. SCOPOLAMINE [Concomitant]
     Active Substance: SCOPOLAMINE
     Indication: Product used for unknown indication
     Route: 065
  97. BUTYLSCOPOLAMINE [Concomitant]
     Active Substance: BUTYLSCOPOLAMINE
     Indication: Product used for unknown indication
     Route: 065
  98. DULCOLAX NOS [Concomitant]
     Active Substance: BISACODYL OR DOCUSATE SODIUM
     Indication: Constipation
     Route: 054
  99. PERIDEX [CHLORHEXIDINE GLUCONATE] [Concomitant]
     Indication: Prophylaxis
     Dosage: SWISH AND SPIT 15 MLS 2 TIMES DAILY
     Route: 048
  100. COMPAZINE [Concomitant]
     Active Substance: PROCHLORPERAZINE MALEATE
     Indication: Nausea
     Route: 065
  101. COMPAZINE [Concomitant]
     Active Substance: PROCHLORPERAZINE MALEATE
     Indication: Vomiting
     Route: 065
  102. BISACODYL [Concomitant]
     Active Substance: BISACODYL
     Indication: Product used for unknown indication
     Route: 048
  103. CHOLECALCIFEROL [Concomitant]
     Active Substance: CHOLECALCIFEROL
     Indication: Vitamin D deficiency
     Dosage: 10,000 UNIT, PATIENT TAKING DIFFERENTLY: TAKE 1 CAPSULE BY MOUTH ONCE A WEEK FOR VITAMIN D DEFICIENC
     Route: 065
  104. CLARITIN [Concomitant]
     Active Substance: LORATADINE
     Indication: Rash
     Route: 048
  105. PROCHLORPERAZINE [Concomitant]
     Active Substance: PROCHLORPERAZINE
     Indication: Prophylaxis of nausea and vomiting
     Route: 048
  106. KEFLEX [Concomitant]
     Active Substance: CEPHALEXIN
     Indication: Product used for unknown indication
     Route: 065
  107. LOVENOX [Concomitant]
     Active Substance: ENOXAPARIN SODIUM
     Indication: Deep vein thrombosis
     Dosage: 60MG/0.6ML INJECTION, INJECT 0.5MLS INTO THE SKIN
     Route: 065
  108. LOVENOX [Concomitant]
     Active Substance: ENOXAPARIN SODIUM
     Indication: Pulmonary embolism
  109. ZOFRAN [Concomitant]
     Active Substance: ONDANSETRON HYDROCHLORIDE
     Indication: Nausea
     Route: 065
  110. ZOFRAN [Concomitant]
     Active Substance: ONDANSETRON HYDROCHLORIDE
     Indication: Vomiting
  111. CELEXA [Concomitant]
     Active Substance: CITALOPRAM HYDROBROMIDE
     Indication: Product used for unknown indication
     Route: 048
  112. ELIQUIS [Concomitant]
     Active Substance: APIXABAN
     Indication: Pulmonary embolism

REACTIONS (8)
  - Small intestinal obstruction [Unknown]
  - Ileus [Unknown]
  - Device related infection [Unknown]
  - Hypoglycaemia [Unknown]
  - Bacteraemia [Unknown]
  - Gastrointestinal haemorrhage [Unknown]
  - Abdominal pain [Unknown]
  - Melaena [Unknown]

NARRATIVE: CASE EVENT DATE: 20220426
